FAERS Safety Report 7960678 (Version 7)
Quarter: 2013Q1

REPORT INFORMATION
  Report Type: Spontaneous
  Country: US (occurrence: US)
  Receive Date: 20110525
  Receipt Date: 20130214
  Transmission Date: 20140127
  Serious: Yes (Other)
  Sender: FDA-Public Use
  Company Number: US-TEVA-282737USA

PATIENT
  Sex: Female

DRUGS (1)
  1. COPAXONE [Suspect]
     Indication: MULTIPLE SCLEROSIS
     Dosage: 20 MILLIGRAM DAILY;
     Route: 058
     Dates: end: 20110417

REACTIONS (11)
  - Respiratory arrest [Recovered/Resolved]
  - Loss of consciousness [Unknown]
  - Confusional state [Recovered/Resolved]
  - Feeling hot [Unknown]
  - Limb injury [Unknown]
  - Nasopharyngitis [Unknown]
  - Chills [Unknown]
  - Thirst [Unknown]
  - Aggression [Unknown]
  - Hypersensitivity [Unknown]
  - Erythema [Unknown]
